FAERS Safety Report 8813137 (Version 1)
Quarter: 2012Q4

REPORT INFORMATION
  Report Type: 
  Country: US (occurrence: US)
  Receive Date: 20120927
  Receipt Date: 20120927
  Transmission Date: 20130627
  Serious: No
  Sender: FDA-Public Use
  Company Number: US-AMGEN-USASP2012041069

PATIENT
  Age: 62 Year
  Sex: Female

DRUGS (5)
  1. PROLIA [Suspect]
     Indication: PRODUCT USED FOR UNKNOWN INDICATION
     Dosage: 60 mg, q6mo
     Dates: start: 20120123
  2. CALCIUM WITH VITAMIN D             /00944201/ [Concomitant]
     Dosage: UNK UNK, qd
  3. CRESTOR [Concomitant]
     Dosage: UNK
  4. VITAMIN D /00107901/ [Concomitant]
     Dosage: UNK
  5. LISINOPRIL [Concomitant]
     Dosage: UNK

REACTIONS (2)
  - Blood calcium increased [Not Recovered/Not Resolved]
  - Pain [Not Recovered/Not Resolved]
